FAERS Safety Report 7379956-3 (Version None)
Quarter: 2011Q1

REPORT INFORMATION
  Report Type: 
  Country: None (occurrence: None)
  Receive Date: 20110329
  Receipt Date: 20110316
  Transmission Date: 20110831
  Serious: Yes (Other)
  Sender: FDA-Public Use
  Company Number: US-EISAI INC-E3810-04535-SPO-US

PATIENT
  Sex: Female

DRUGS (4)
  1. NUCYNTA [Suspect]
     Indication: BACK PAIN
     Route: 048
     Dates: start: 20101001
  2. ACIPHEX [Suspect]
     Route: 048
  3. XANAX [Concomitant]
     Indication: ANXIETY
     Route: 048
  4. NAPROXEN [Concomitant]
     Indication: PAIN

REACTIONS (3)
  - CONVULSION [None]
  - MIGRAINE [None]
  - TONGUE INJURY [None]
